FAERS Safety Report 9892890 (Version 3)
Quarter: 2015Q2

REPORT INFORMATION
  Report Type: Report from Study
  Country: JP (occurrence: JP)
  Receive Date: 20140213
  Receipt Date: 20150507
  Transmission Date: 20150821
  Serious: Yes (Other)
  Sender: FDA-Public Use
  Company Number: JP-009507513-1402JPN004521

PATIENT
  Age: 79 Year
  Sex: Male
  Weight: 45 kg

DRUGS (11)
  1. TEMOZOLOMIDE. [Suspect]
     Active Substance: TEMOZOLOMIDE
     Indication: ANAPLASTIC ASTROCYTOMA
     Dosage: 75 MG/M2, QD
     Route: 041
     Dates: start: 20101129, end: 20101220
  2. GASTER [Concomitant]
     Active Substance: FAMOTIDINE
     Indication: PROPHYLAXIS
     Dosage: DAILY DOSAGE UNKNOWN
     Route: 048
     Dates: start: 20101111, end: 20110223
  3. FRUCTOSE (+) GLYCERIN [Concomitant]
     Dosage: DAILY DOSAGE UNKNOWN
     Route: 041
     Dates: start: 20101122, end: 20101202
  4. MOBENZOCIN [Concomitant]
     Active Substance: CEFTAZIDIME
     Dosage: DAILY DOSAGE UNKNOWN
     Route: 041
     Dates: start: 20101125, end: 20101202
  5. WARFARIN [Concomitant]
     Active Substance: WARFARIN
     Dosage: DAILY DOSAGE UNKNOWN, (FORMULATION: POR)
     Route: 048
     Dates: start: 20101109, end: 20110110
  6. PREDNISOLONE. [Suspect]
     Active Substance: PREDNISOLONE
     Indication: ANAPLASTIC ASTROCYTOMA
     Dosage: DAILY DOSAGE UNKNOWN
     Route: 048
     Dates: start: 20101119, end: 20110223
  7. GRANISETRON HYDROCHLORIDE. [Concomitant]
     Active Substance: GRANISETRON HYDROCHLORIDE
     Indication: PROPHYLAXIS
     Dosage: DAILY DOSAGE UNKNOWN
     Route: 041
     Dates: start: 20101129, end: 20101201
  8. GASTER [Concomitant]
     Active Substance: FAMOTIDINE
     Indication: PROPHYLAXIS
     Dosage: DAILY DOSAGE UNKNOWN
     Route: 041
     Dates: start: 20101122, end: 20101202
  9. BAKTAR [Concomitant]
     Active Substance: SULFAMETHOXAZOLE\TRIMETHOPRIM
     Indication: ANTIFUNGAL PROPHYLAXIS
     Dosage: DAILY DOSAGE UNKNOWN
     Route: 048
     Dates: start: 20101125, end: 20110223
  10. RINDERON (BETAMETHASONE SODIUM PHOSPHATE) [Suspect]
     Active Substance: BETAMETHASONE SODIUM PHOSPHATE
     Indication: ANAPLASTIC ASTROCYTOMA
     Dosage: UNK
     Route: 041
     Dates: start: 20101122, end: 20101202
  11. MADOPAR [Concomitant]
     Active Substance: BENSERAZIDE HYDROCHLORIDE\LEVODOPA
     Dosage: DAILY DOSAGE UNKNOWN
     Route: 048
     Dates: start: 20101129, end: 20110223

REACTIONS (21)
  - Monocyte count decreased [Recovered/Resolved]
  - Pneumonia [Recovered/Resolved]
  - Blood creatinine decreased [Recovered/Resolved]
  - Proteinuria [Recovered/Resolved]
  - Headache [Not Recovered/Not Resolved]
  - Hepatic function abnormal [Recovering/Resolving]
  - Constipation [Not Recovered/Not Resolved]
  - White blood cell count decreased [Recovered/Resolved]
  - Aspartate aminotransferase increased [Recovered/Resolved]
  - Blood glucose decreased [Recovered/Resolved]
  - Monocyte count increased [Not Recovered/Not Resolved]
  - Alanine aminotransferase increased [Recovered/Resolved]
  - Blood glucose increased [Recovered/Resolved]
  - Blood glucose decreased [Recovered/Resolved]
  - Blood potassium increased [Recovered/Resolved]
  - Intracranial tumour haemorrhage [Recovering/Resolving]
  - Basophil count increased [Recovered/Resolved]
  - Blood lactate dehydrogenase increased [Recovered/Resolved]
  - Blood urine present [Recovered/Resolved]
  - Blood chloride decreased [Recovered/Resolved]
  - White blood cell count increased [Recovered/Resolved]

NARRATIVE: CASE EVENT DATE: 20101202
